FAERS Safety Report 9563003 (Version 1)
Quarter: 2013Q3

REPORT INFORMATION
  Report Type: Spontaneous
  Country: US (occurrence: US)
  Receive Date: 20130927
  Receipt Date: 20130927
  Transmission Date: 20140515
  Serious: Yes (Disabling, Other)
  Sender: FDA-Public Use
  Company Number: CHPA2013US014684

PATIENT
  Age: 69 Year
  Sex: Female

DRUGS (6)
  1. IBUPROFEN [Suspect]
     Dosage: 2 DF, ONCE/SINGLE
  2. EXCEDRIN SINUS HEADACHE [Suspect]
     Indication: SINUS HEADACHE
     Dosage: 2 DF, UNK
  3. EXCEDRIN ES BACK + BODY [Suspect]
     Indication: ARTHRALGIA
     Dosage: 2 DF, UNK
  4. EXCEDRIN EXTRA STRENGTH [Suspect]
     Indication: ARTHRALGIA
     Dosage: 2 DF, UNK
     Route: 048
  5. EXCEDRIN TENSION HEADACHE [Suspect]
     Indication: TENSION HEADACHE
     Dosage: 2 DF, UNK
  6. EXCEDRIN MIGRAINE [Suspect]
     Indication: MIGRAINE
     Dosage: 2 DF, UNK

REACTIONS (3)
  - Loss of control of legs [Not Recovered/Not Resolved]
  - Rectal haemorrhage [Recovered/Resolved]
  - Expired drug administered [Unknown]
